FAERS Safety Report 7771076-9 (Version None)
Quarter: 2011Q3

REPORT INFORMATION
  Report Type: 
  Country: None (occurrence: None)
  Receive Date: 20110922
  Receipt Date: 20110607
  Transmission Date: 20111222
  Serious: No
  Sender: FDA-Public Use
  Company Number: US-ASTRAZENECA-2011SE34868

PATIENT
  Age: 52 Year
  Sex: Female

DRUGS (8)
  1. LISINOPRIL [Concomitant]
     Indication: HYPERTENSION
  2. NAPROXEN [Concomitant]
     Indication: ARTHROPATHY
     Dosage: DOSE FREQUENCY-BID, TOTAL DAILY DOSE-500 MG
  3. GABAPENTIN [Concomitant]
     Indication: NEUROPATHY PERIPHERAL
  4. SEROQUEL [Suspect]
     Indication: BIPOLAR DISORDER
     Route: 048
  5. SEROQUEL [Suspect]
     Route: 048
  6. VALIUM [Concomitant]
     Dosage: DOSE FREQUENCY-TID, TOTAL DAILY DOSE-10 MG
  7. LAMICTAL [Concomitant]
     Dosage: DOSE FREQUENCY-BID, TOTAL DAILY DOSE-100 MG
  8. PROVENTIL [Concomitant]
     Indication: COUGH

REACTIONS (2)
  - BLISTER [None]
  - SOMNOLENCE [None]
